FAERS Safety Report 20673948 (Version 1)
Quarter: 2022Q2

REPORT INFORMATION
  Report Type: Report from Study
  Country: BR (occurrence: BR)
  Receive Date: 20220405
  Receipt Date: 20220405
  Transmission Date: 20220721
  Serious: Yes (Other)
  Sender: FDA-Public Use
  Company Number: BR-ABBVIE-22K-020-4343834-00

PATIENT
  Age: 42 Year
  Sex: Female
  Weight: 69.5 kg

DRUGS (3)
  1. RINVOQ [Suspect]
     Active Substance: UPADACITINIB
     Indication: Rheumatoid arthritis
     Route: 048
     Dates: start: 20201209
  2. COVID-19 VACCINATION [Concomitant]
     Indication: COVID-19 immunisation
     Route: 030
     Dates: start: 202201, end: 202201
  3. COVID-19 VACCINATION [Concomitant]
     Route: 030
     Dates: start: 2022, end: 2022

REACTIONS (7)
  - Metabolic surgery [Recovering/Resolving]
  - COVID-19 [Recovered/Resolved]
  - Bronchitis [Unknown]
  - Dysphonia [Recovering/Resolving]
  - Weight decreased [Unknown]
  - Secretion discharge [Unknown]
  - Arthralgia [Recovering/Resolving]

NARRATIVE: CASE EVENT DATE: 20220101
